FAERS Safety Report 5307495-X (Version None)
Quarter: 2007Q2

REPORT INFORMATION
  Report Type: 
  Country: None (occurrence: None)
  Receive Date: 20070425
  Receipt Date: 20070413
  Transmission Date: 20071010
  Serious: Yes (Other)
  Sender: FDA-Public Use
  Company Number: US-ELI_LILLY_AND_COMPANY-US200704003073

PATIENT
  Sex: Male

DRUGS (1)
  1. CYMBALTA [Suspect]
     Route: 048

REACTIONS (2)
  - AMNESIA [None]
  - MANIA [None]
